FAERS Safety Report 8209723-X (Version None)
Quarter: 2012Q1

REPORT INFORMATION
  Report Type: 
  Country: None (occurrence: None)
  Receive Date: 20120228
  Receipt Date: 20110422
  Transmission Date: 20120608
  Serious: Yes (Other)
  Sender: FDA-Public Use
  Company Number: RB-26370-2011

PATIENT
  Sex: Male

DRUGS (3)
  1. SUBUTEX [Suspect]
     Indication: DRUG DEPENDENCE
     Dosage: (32 MG TRANSPLACENTAL)
     Route: 064
     Dates: start: 20110201
  2. SUBOXONE [Suspect]
     Indication: DRUG DEPENDENCE
     Dosage: (32 MG TRANSPLACENTAL)
     Route: 064
     Dates: start: 20100601, end: 20110201
  3. SUBUTEX [Suspect]
     Dosage: (32 MG TRANSMAMMARY)
     Route: 063
     Dates: start: 20110307

REACTIONS (3)
  - TREMOR NEONATAL [None]
  - FOETAL EXPOSURE DURING PREGNANCY [None]
  - EXPOSURE DURING BREAST FEEDING [None]
